FAERS Safety Report 5697720-8 (Version None)
Quarter: 2008Q2

REPORT INFORMATION
  Report Type: 
  Country: None (occurrence: None)
  Receive Date: 20080408
  Receipt Date: 20080404
  Transmission Date: 20081010
  Serious: Yes (Hospitalization)
  Sender: FDA-Public Use
  Company Number: B0513141A

PATIENT
  Age: 40 Year
  Sex: Male
  Weight: 68 kg

DRUGS (5)
  1. PAXIL [Suspect]
     Indication: DEPRESSION
     Dosage: 10MG PER DAY
     Route: 048
     Dates: start: 20071026
  2. BUPROPION SR [Suspect]
     Indication: DEPRESSION
     Dosage: 150MG TWICE PER DAY
     Route: 048
     Dates: start: 20071221, end: 20080206
  3. MYSLEE [Concomitant]
     Indication: DRUG USE FOR UNKNOWN INDICATION
     Route: 048
  4. AMOBAN [Concomitant]
     Indication: DRUG USE FOR UNKNOWN INDICATION
     Route: 048
  5. MOHRUS TAPE [Concomitant]
     Indication: DRUG USE FOR UNKNOWN INDICATION
     Route: 062

REACTIONS (6)
  - ANXIETY [None]
  - BIPOLAR DISORDER [None]
  - DEPRESSED MOOD [None]
  - IRRITABILITY [None]
  - MANIA [None]
  - MOOD ALTERED [None]
